FAERS Safety Report 7504453-1 (Version None)
Quarter: 2011Q2

REPORT INFORMATION
  Report Type: 
  Country: None (occurrence: None)
  Receive Date: 20110525
  Receipt Date: 20090409
  Transmission Date: 20111010
  Serious: Yes (Other)
  Sender: FDA-Public Use
  Company Number: US-BAYER-200917676NA

PATIENT
  Age: 62 Year
  Sex: Male
  Weight: 83 kg

DRUGS (8)
  1. HEPARIN [Concomitant]
     Dosage: 1000 UNITS/ML
     Route: 042
     Dates: start: 20070306, end: 20070306
  2. COREG [Concomitant]
     Dosage: 12.5 MG TWICE DAILY
     Route: 048
  3. COZAAR [Concomitant]
     Dosage: 50 MG TWICE DAILY
     Route: 048
  4. TRASYLOL [Suspect]
     Indication: CORONARY ARTERY BYPASS
     Dosage: LOADING DOSE:UNSPECIFIED
     Route: 042
     Dates: start: 20070306, end: 20070306
  5. LASIX [Concomitant]
     Dosage: 20MG/2ML
     Route: 042
     Dates: start: 20070306, end: 20070306
  6. CORDARONE [Concomitant]
     Dosage: 100 MG TWICE DAILY
     Route: 048
  7. ACETYLSALICYLIC ACID SRT [Concomitant]
     Dosage: 81 MG DAILY
     Route: 048
     Dates: start: 20070306, end: 20070306
  8. LASIX [Concomitant]
     Dosage: 40 MG DAILY
     Route: 048

REACTIONS (9)
  - RENAL IMPAIRMENT [None]
  - EMOTIONAL DISTRESS [None]
  - STRESS [None]
  - RENAL FAILURE [None]
  - UNEVALUABLE EVENT [None]
  - RENAL INJURY [None]
  - FEAR [None]
  - PAIN [None]
  - ANXIETY [None]
